FAERS Safety Report 6146232-6 (Version None)
Quarter: 2009Q2

REPORT INFORMATION
  Report Type: 
  Country: None (occurrence: None)
  Receive Date: 20090407
  Receipt Date: 20090402
  Transmission Date: 20091009
  Serious: Yes (Life-Threatening, Hospitalization, Other)
  Sender: FDA-Public Use
  Company Number: FR-ELI_LILLY_AND_COMPANY-FR200904000384

PATIENT
  Sex: Male

DRUGS (12)
  1. ALIMTA [Suspect]
     Indication: PLEURAL MESOTHELIOMA
     Dosage: 500 MG/M2, EVERY THREE WEEKS
     Route: 042
     Dates: start: 20081118, end: 20090211
  2. CARBOPLATIN [Concomitant]
     Indication: PLEURAL MESOTHELIOMA
     Dosage: UNK, EVERY THREE WEEKS
     Route: 042
     Dates: start: 20081118, end: 20090121
  3. THERAPEUTIC RADIOPHARMACEUTICALS [Concomitant]
     Dosage: UNK, EVERY 2 DAYS
     Route: 065
     Dates: start: 20081124, end: 20081128
  4. VITAMIN B-12 [Concomitant]
     Indication: VITAMIN SUPPLEMENTATION
     Dosage: UNK, UNKNOWN
     Route: 065
  5. FOLIC ACID [Concomitant]
     Indication: VITAMIN SUPPLEMENTATION
     Dosage: UNK, UNKNOWN
     Route: 065
  6. VISKEN [Concomitant]
     Dosage: UNK, UNKNOWN
     Route: 065
  7. COTAREG [Concomitant]
     Dosage: UNK, UNKNOWN
     Route: 065
  8. ALLOPURINOL [Concomitant]
     Dosage: UNK, UNKNOWN
     Route: 065
  9. GLUCIDORAL [Concomitant]
     Dosage: UNK, UNKNOWN
     Route: 065
  10. AVANDAMET [Concomitant]
     Dosage: UNK, UNKNOWN
     Route: 065
  11. CRESTOR [Concomitant]
     Dosage: UNK, UNKNOWN
     Route: 065
  12. CORTANCYL [Concomitant]
     Indication: PROPHYLAXIS
     Dosage: UNK, UNKNOWN
     Route: 065

REACTIONS (6)
  - ANAEMIA [None]
  - CARDIOGENIC SHOCK [None]
  - FEBRILE BONE MARROW APLASIA [None]
  - MULTI-ORGAN FAILURE [None]
  - RENAL FAILURE ACUTE [None]
  - SEPSIS [None]
